FAERS Safety Report 5639558-3 (Version None)
Quarter: 2008Q1

REPORT INFORMATION
  Report Type: 
  Country: None (occurrence: None)
  Receive Date: 20080226
  Receipt Date: 20080214
  Transmission Date: 20080703
  Serious: Yes (Hospitalization)
  Sender: FDA-Public Use
  Company Number: US-PFIZER INC-2008015783

PATIENT
  Age: 11 Year
  Sex: Male

DRUGS (3)
  1. GEODON [Suspect]
     Dosage: DAILY DOSE:80MG
  2. REMERON [Suspect]
  3. ADDERALL 10 [Suspect]

REACTIONS (3)
  - AGGRESSION [None]
  - DISORIENTATION [None]
  - SEROTONIN SYNDROME [None]
